FAERS Safety Report 15565649 (Version 1)
Quarter: 2018Q4

REPORT INFORMATION
  Report Type: Spontaneous
  Country: US (occurrence: US)
  Receive Date: 20181025
  Receipt Date: 20181025
  Transmission Date: 20190205
  Serious: No
  Sender: FDA-Public Use
  Company Number: None

PATIENT
  Age: 56 Year
  Sex: Female
  Weight: 72.57 kg

DRUGS (1)
  1. TALTZ [Suspect]
     Active Substance: IXEKIZUMAB
     Indication: PSORIASIS
     Dosage: FREQUENCY: AT WEEK 12, THEN EVERY 4 WEEKS AS DIRECTED
     Route: 058
     Dates: start: 201808

REACTIONS (3)
  - Acne [None]
  - Lacrimation increased [None]
  - Rhinorrhoea [None]
